FAERS Safety Report 14918778 (Version 2)
Quarter: 2018Q2

REPORT INFORMATION
  Report Type: Spontaneous
  Country: US (occurrence: US)
  Receive Date: 20180521
  Receipt Date: 20180523
  Transmission Date: 20180711
  Serious: Yes (Other)
  Sender: FDA-Public Use
  Company Number: US-PFIZER INC-2018204368

PATIENT
  Age: 49 Year
  Sex: Female
  Weight: 103.8 kg

DRUGS (4)
  1. ZOSYN [Suspect]
     Active Substance: PIPERACILLIN SODIUM\TAZOBACTAM SODIUM
     Indication: TENOSYNOVITIS
     Dosage: 3.375 G, EVERY 8 HOURS OVER THE EXTENDED 4 HOUR INFUSION PERIOD
     Route: 042
     Dates: start: 20180415, end: 20180421
  2. VANCOMYCIN HCL [Suspect]
     Active Substance: VANCOMYCIN HYDROCHLORIDE
     Indication: TENOSYNOVITIS
     Dosage: 1.5 G, EVERY 12 HOURS
     Route: 042
     Dates: start: 20180415, end: 20180418
  3. VANCOMYCIN HCL [Suspect]
     Active Substance: VANCOMYCIN HYDROCHLORIDE
     Indication: OSTEOMYELITIS
  4. ZOSYN [Suspect]
     Active Substance: PIPERACILLIN SODIUM\TAZOBACTAM SODIUM
     Indication: OSTEOMYELITIS

REACTIONS (4)
  - Acute kidney injury [Unknown]
  - Nephropathy toxic [Recovering/Resolving]
  - Renal tubular necrosis [Unknown]
  - Nephritis allergic [Unknown]

NARRATIVE: CASE EVENT DATE: 20180418
